FAERS Safety Report 25496637 (Version 3)
Quarter: 2025Q3

REPORT INFORMATION
  Report Type: Report from Study
  Country: US (occurrence: US)
  Receive Date: 20250630
  Receipt Date: 20250714
  Transmission Date: 20251021
  Serious: Yes (Other)
  Sender: JAZZ
  Company Number: US-JAZZ PHARMACEUTICALS-2025-US-015491

PATIENT
  Sex: Female
  Weight: 55.329 kg

DRUGS (3)
  1. EPIDIOLEX [Suspect]
     Active Substance: CANNABIDIOL
     Indication: Lennox-Gastaut syndrome
     Dosage: 1.4 MILLILITER, BID [5.06MG/KG/DAY]
     Dates: start: 20250606
  2. EPIDIOLEX [Suspect]
     Active Substance: CANNABIDIOL
     Dosage: 2.8 MILLILITER, BID [10.12MG/KG/DAY]
     Dates: start: 202506
  3. EPIDIOLEX [Suspect]
     Active Substance: CANNABIDIOL
     Dosage: 0.7 MILLILITER, BID [2.53 MG/KG/DAY]
     Dates: start: 20250702

REACTIONS (1)
  - Seizure [Not Recovered/Not Resolved]
